FAERS Safety Report 18242819 (Version 2)
Quarter: 2020Q4

REPORT INFORMATION
  Report Type: Report from Study
  Country: US (occurrence: US)
  Receive Date: 20200908
  Receipt Date: 20201013
  Transmission Date: 20210113
  Serious: Yes (Other)
  Sender: FDA-Public Use
  Company Number: US-GILEAD-2020-0494032

PATIENT
  Sex: Female
  Weight: 68.93 kg

DRUGS (7)
  1. ARMOUR THYROID [Concomitant]
     Active Substance: THYROID, PORCINE
  2. DAILY MULTIPLE VITAMINS WITH IRON [Concomitant]
  3. DETROL LA [Concomitant]
     Active Substance: TOLTERODINE TARTRATE
  4. DULOXETINE. [Concomitant]
     Active Substance: DULOXETINE
  5. ACETAMINOPHEN AND CODEINE [Concomitant]
     Active Substance: ACETAMINOPHEN\CODEINE PHOSPHATE
  6. AMBRISENTAN [Suspect]
     Active Substance: AMBRISENTAN
     Indication: PULMONARY ARTERIAL HYPERTENSION
     Dosage: 5 MG
     Route: 065
     Dates: start: 20120305
  7. AMBRISENTAN [Suspect]
     Active Substance: AMBRISENTAN
     Dosage: 10 MG, QD
     Route: 048

REACTIONS (3)
  - Pulmonary artery occlusion [Unknown]
  - Catheterisation cardiac [Unknown]
  - Depression [Unknown]
